FAERS Safety Report 6845075-5 (Version None)
Quarter: 2010Q3

REPORT INFORMATION
  Report Type: 
  Country: None (occurrence: None)
  Receive Date: 20100715
  Receipt Date: 20070822
  Transmission Date: 20110219
  Serious: Yes (Other)
  Sender: FDA-Public Use
  Company Number: US-PFIZER INC-2007068449

PATIENT
  Sex: Female
  Weight: 77.3 kg

DRUGS (3)
  1. CHANTIX [Suspect]
     Indication: SMOKING CESSATION THERAPY
     Dates: start: 20070801, end: 20070801
  2. VALSARTAN [Concomitant]
  3. COMBIVENT [Concomitant]
     Route: 055

REACTIONS (6)
  - EYELID OEDEMA [None]
  - INSOMNIA [None]
  - LIP OEDEMA [None]
  - NAUSEA [None]
  - OEDEMA PERIPHERAL [None]
  - VOMITING [None]
